FAERS Safety Report 25936167 (Version 2)
Quarter: 2025Q4

REPORT INFORMATION
  Report Type: Spontaneous
  Country: US (occurrence: US)
  Receive Date: 20251017
  Receipt Date: 20251020
  Transmission Date: 20260117
  Serious: No
  Sender: PFIZER
  Company Number: US-PFIZER INC-202500202291

PATIENT
  Sex: Female

DRUGS (2)
  1. BRAFTOVI [Interacting]
     Active Substance: ENCORAFENIB
     Dosage: 150 MG, 2X/DAY ((75MG; 2 CAPSULES BY MOUTH DAILY AT 8AM AND 1 CAPSULE AT 8PM)
     Route: 048
  2. LEXAPRO [Suspect]
     Active Substance: ESCITALOPRAM OXALATE
     Dosage: UNK

REACTIONS (1)
  - Drug interaction [Unknown]
